FAERS Safety Report 9992596 (Version 1)
Quarter: 2014Q1

REPORT INFORMATION
  Report Type: Spontaneous
  Country: US (occurrence: US)
  Receive Date: 20140310
  Receipt Date: 20140310
  Transmission Date: 20141002
  Serious: Yes (Other)
  Sender: FDA-Public Use
  Company Number: US-PFIZER INC-2014066114

PATIENT
  Age: 61 Year
  Sex: Female
  Weight: 78.01 kg

DRUGS (4)
  1. SOMAVERT [Suspect]
     Indication: ACROMEGALY
     Dosage: UNK
     Route: 058
     Dates: start: 201112, end: 20140212
  2. LISINOPRIL [Concomitant]
     Indication: HYPERTENSION
     Dosage: UNK
  3. SIMVASTATIN [Concomitant]
     Indication: BLOOD CHOLESTEROL INCREASED
     Dosage: UNK
  4. IBUPROFEN [Concomitant]
     Indication: PAIN
     Dosage: 800 MG, UNK

REACTIONS (3)
  - Herpes zoster [Unknown]
  - Post herpetic neuralgia [Unknown]
  - Furuncle [Unknown]
